FAERS Safety Report 11982149 (Version 1)
Quarter: 2016Q1

REPORT INFORMATION
  Report Type: Spontaneous
  Country: US (occurrence: None)
  Receive Date: 20160129
  Receipt Date: 20160129
  Transmission Date: 20160526
  Serious: Yes (Other)
  Sender: FDA-Public Use
  Company Number: None

PATIENT
  Age: 72 Year
  Sex: Female
  Weight: 74.84 kg

DRUGS (7)
  1. AMLODIPINE [Concomitant]
     Active Substance: AMLODIPINE BESYLATE
  2. NEXIUM [Concomitant]
     Active Substance: ESOMEPRAZOLE MAGNESIUM
  3. OMEPRAZOLE. [Concomitant]
     Active Substance: OMEPRAZOLE
  4. VIT. D2 [Concomitant]
  5. ANORO ELLIPTA [Suspect]
     Active Substance: UMECLIDINIUM BROMIDE\VILANTEROL TRIFENATATE
     Indication: DYSPNOEA
     Dosage: 1 PUFF, BEDTIME, BY MOUTH
     Dates: start: 20151121, end: 20151213
  6. MELOXICAM. [Concomitant]
     Active Substance: MELOXICAM
  7. ANORO ELLIPTA [Suspect]
     Active Substance: UMECLIDINIUM BROMIDE\VILANTEROL TRIFENATATE
     Indication: CHRONIC OBSTRUCTIVE PULMONARY DISEASE
     Dosage: 1 PUFF, BEDTIME, BY MOUTH
     Dates: start: 20151121, end: 20151213

REACTIONS (9)
  - Insomnia [None]
  - Sleep apnoea syndrome [None]
  - Constipation [None]
  - Eye pain [None]
  - Tremor [None]
  - Swelling face [None]
  - Nausea [None]
  - Hyperventilation [None]
  - Nervousness [None]

NARRATIVE: CASE EVENT DATE: 20151207
